FAERS Safety Report 11059945 (Version 1)
Quarter: 2015Q2

REPORT INFORMATION
  Report Type: Spontaneous
  Country: US (occurrence: US)
  Receive Date: 20150423
  Receipt Date: 20150423
  Transmission Date: 20150821
  Serious: Yes (Hospitalization)
  Sender: FDA-Public Use
  Company Number: US-BRISTOL-MYERS SQUIBB COMPANY-BMS-2015-023678

PATIENT
  Age: 63 Year
  Sex: Male

DRUGS (1)
  1. NULOJIX [Suspect]
     Active Substance: BELATACEPT
     Indication: RENAL TRANSPLANT
     Dosage: 650 MG, UNK
     Route: 042
     Dates: start: 20150401

REACTIONS (2)
  - Arthralgia [Not Recovered/Not Resolved]
  - Hyperuricaemia [Unknown]
